FAERS Safety Report 9239840 (Version 1)
Quarter: 2013Q2

REPORT INFORMATION
  Report Type: Spontaneous
  Country: CL (occurrence: CL)
  Receive Date: 20130418
  Receipt Date: 20130418
  Transmission Date: 20140414
  Serious: Yes (Hospitalization)
  Sender: FDA-Public Use
  Company Number: CL-PFIZER INC-2013111164

PATIENT
  Age: 41 Year
  Sex: Female

DRUGS (2)
  1. AZULFIDINE EN [Suspect]
     Indication: COLITIS ULCERATIVE
     Dosage: 1 G, 3X/DAY
     Route: 048
     Dates: start: 20130223, end: 20130407
  2. EUTIROX [Concomitant]
     Indication: HYPOTHYROIDISM
     Dosage: UNK

REACTIONS (4)
  - Drug hypersensitivity [Recovering/Resolving]
  - Chromaturia [Recovering/Resolving]
  - Skin discolouration [Recovering/Resolving]
  - Nasopharyngitis [Unknown]
